FAERS Safety Report 4802932-9 (Version None)
Quarter: 2005Q4

REPORT INFORMATION
  Report Type: 
  Country: None (occurrence: None)
  Receive Date: 20051019
  Receipt Date: 20050607
  Transmission Date: 20060501
  Serious: Yes (Life-Threatening, Hospitalization, Other)
  Sender: FDA-Public Use
  Company Number: IL-NOVOPROD-244757

PATIENT
  Age: 37 Year
  Sex: Female
  Weight: 65 kg

DRUGS (8)
  1. NOVOSEVEN [Suspect]
     Indication: HAEMORRHAGE
     Dosage: 6 MG ONCE
     Route: 042
     Dates: start: 20050526, end: 20050526
  2. FENTANYL [Concomitant]
  3. ESMERON [Concomitant]
  4. KETALAR [Concomitant]
  5. MONOCEF [Concomitant]
  6. FLAGYL [Concomitant]
  7. ROCURONIUM [Concomitant]
  8. MIDAZOLAM [Concomitant]

REACTIONS (1)
  - CEREBRAL INFARCTION [None]
